FAERS Safety Report 12617239 (Version 2)
Quarter: 2016Q3

REPORT INFORMATION
  Report Type: Spontaneous
  Country: SK (occurrence: SK)
  Receive Date: 20160803
  Receipt Date: 20160804
  Transmission Date: 20161109
  Serious: Yes (Hospitalization)
  Sender: FDA-Public Use
  Company Number: SK-ROCHE-1807231

PATIENT
  Age: 67 Year
  Sex: Male

DRUGS (10)
  1. OXALIPLATIN. [Concomitant]
     Active Substance: OXALIPLATIN
     Indication: COLORECTAL CANCER METASTATIC
     Route: 065
     Dates: start: 20130611
  2. STADAPYRIN [Concomitant]
     Route: 065
  3. CAPECITABINE. [Suspect]
     Active Substance: CAPECITABINE
     Indication: COLORECTAL CANCER METASTATIC
     Route: 065
     Dates: start: 20130611, end: 20160615
  4. AVASTIN [Suspect]
     Active Substance: BEVACIZUMAB
     Indication: COLORECTAL CANCER METASTATIC
     Route: 042
     Dates: start: 20130611, end: 20160615
  5. FURON [Concomitant]
     Active Substance: FUROSEMIDE
     Route: 065
  6. SOBYCOR [Concomitant]
     Route: 048
  7. ELEVEON [Concomitant]
     Route: 065
  8. PRENESSA [Concomitant]
     Active Substance: PERINDOPRIL
     Route: 065
  9. STADAPYRIN [Concomitant]
     Route: 065
  10. CARVEDILOL. [Concomitant]
     Active Substance: CARVEDILOL
     Route: 065

REACTIONS (2)
  - Congestive cardiomyopathy [Unknown]
  - Cardiac failure chronic [Unknown]
